FAERS Safety Report 8848786 (Version 3)
Quarter: 2013Q2

REPORT INFORMATION
  Report Type: Spontaneous
  Country: JP (occurrence: JP)
  Receive Date: 20121018
  Receipt Date: 20130619
  Transmission Date: 20140414
  Serious: Yes (Hospitalization)
  Sender: FDA-Public Use
  Company Number: JP-MYLANLABS-2012S1021048

PATIENT
  Age: 73 Year
  Sex: Female

DRUGS (2)
  1. CARBOPLATIN [Suspect]
     Indication: UTERINE CANCER
     Route: 041
     Dates: start: 201208, end: 201208
  2. PACLITAXEL [Suspect]
     Indication: UTERINE CANCER
     Dosage: DAILY DOSE: AUC 6
     Route: 041
     Dates: start: 201208, end: 201208

REACTIONS (3)
  - Colitis [Recovering/Resolving]
  - Febrile neutropenia [Recovered/Resolved]
  - Pneumonia [Recovered/Resolved]
